FAERS Safety Report 7939163-X (Version None)
Quarter: 2011Q4

REPORT INFORMATION
  Report Type: 
  Country: None (occurrence: None)
  Receive Date: 20111124
  Receipt Date: 20110928
  Transmission Date: 20120403
  Serious: Yes (Hospitalization)
  Sender: FDA-Public Use
  Company Number: US-ROCHE-1015175

PATIENT
  Sex: Female
  Weight: 60 kg

DRUGS (3)
  1. CARBOPLATIN [Concomitant]
     Dates: start: 20110302
  2. HERCEPTIN [Suspect]
     Indication: BREAST CANCER
     Route: 042
     Dates: start: 20110302
  3. DOCETAXEL [Concomitant]
     Dates: start: 20110302

REACTIONS (1)
  - AORTITIS [None]
